FAERS Safety Report 7793434-9 (Version None)
Quarter: 2011Q4

REPORT INFORMATION
  Report Type: 
  Country: None (occurrence: None)
  Receive Date: 20111003
  Receipt Date: 20110803
  Transmission Date: 20120403
  Serious: Yes (Other)
  Sender: FDA-Public Use
  Company Number: PHHY2011HU81591

PATIENT
  Age: 83 Year

DRUGS (2)
  1. SIMVASTATIN [Suspect]
     Dosage: 20 MG, UNK
  2. SINTROM [Interacting]

REACTIONS (4)
  - WRONG DRUG ADMINISTERED [None]
  - HAEMATOMA [None]
  - INTERNATIONAL NORMALISED RATIO INCREASED [None]
  - DRUG INTERACTION [None]
